FAERS Safety Report 5337357-3 (Version None)
Quarter: 2007Q2

REPORT INFORMATION
  Report Type: 
  Country: None (occurrence: None)
  Receive Date: 20070529
  Receipt Date: 20070516
  Transmission Date: 20071010
  Serious: Yes (Other)
  Sender: FDA-Public Use
  Company Number: US-SHR-US-2006-028866

PATIENT
  Age: 56 Year
  Sex: Female

DRUGS (3)
  1. BETASERON [Suspect]
     Dosage: 8 MIU, EVERY 2D
     Route: 058
     Dates: start: 20051114
  2. PERCOCET [Concomitant]
  3. MOTRIN [Concomitant]
     Dosage: UNK, UNK

REACTIONS (5)
  - DYSPHAGIA [None]
  - LYMPHADENOPATHY [None]
  - RETCHING [None]
  - TOOTH DISORDER [None]
  - TOOTH FRACTURE [None]
